FAERS Safety Report 4809385-5 (Version None)
Quarter: 2005Q4

REPORT INFORMATION
  Report Type: 
  Country: None (occurrence: None)
  Receive Date: 20051018
  Receipt Date: 20051005
  Transmission Date: 20060501
  Serious: Yes (Other)
  Sender: FDA-Public Use
  Company Number: 200511855BBE

PATIENT
  Age: 45 Year
  Sex: Female

DRUGS (3)
  1. GAMUNEX [Suspect]
     Dosage: 80 G, TOTAL DAILY
  2. GANCICLOVIR [Concomitant]
  3. PREDNISONE [Concomitant]

REACTIONS (3)
  - CHILLS [None]
  - DYSPNOEA [None]
  - HYPOXIA [None]
